FAERS Safety Report 9416243 (Version 6)
Quarter: 2014Q1

REPORT INFORMATION
  Report Type: Spontaneous
  Country: US (occurrence: US)
  Receive Date: 20130724
  Receipt Date: 20140102
  Transmission Date: 20141002
  Serious: No
  Sender: FDA-Public Use
  Company Number: US-009507513-1307USA013167

PATIENT
  Age: 63 Year
  Sex: Female

DRUGS (3)
  1. PEG-INTRON [Suspect]
     Indication: HEPATITIS C
     Dosage: UNK, QW; REDIPEN
     Route: 058
     Dates: start: 20130708, end: 20131108
  2. REBETOL [Suspect]
     Indication: HEPATITIS C
     Dosage: UNK, BID
     Route: 048
     Dates: start: 20130708, end: 20131108
  3. VICTRELIS [Suspect]
     Indication: HEPATITIS C
     Dosage: UNK, Q8H; DOSE 1200 MG
     Route: 048
     Dates: start: 20130805, end: 20131108

REACTIONS (11)
  - Constipation [Unknown]
  - Muscle spasms [Unknown]
  - Musculoskeletal stiffness [Unknown]
  - Local swelling [Unknown]
  - Unevaluable event [Unknown]
  - Weight increased [Unknown]
  - Local swelling [Recovering/Resolving]
  - Arthralgia [Unknown]
  - Nausea [Unknown]
  - Vomiting [Unknown]
  - Weight decreased [Unknown]
